FAERS Safety Report 4524763-X (Version None)
Quarter: 2004Q4

REPORT INFORMATION
  Report Type: 
  Country: None (occurrence: None)
  Receive Date: 20041209
  Receipt Date: 20041125
  Transmission Date: 20050328
  Serious: Yes (Other)
  Sender: FDA-Public Use
  Company Number: 240733

PATIENT

DRUGS (2)
  1. INSULIN DETEMIR [Suspect]
     Indication: DIABETES MELLITUS INSULIN-DEPENDENT
     Dosage: 36 U, QD, SUBCUTANEOUS
     Route: 058
     Dates: start: 20040827
  2. NOVORAPID (INSULIN ASPART) SOLUTION FOR INJECTION, 100U/ML [Suspect]
     Indication: DIABETES MELLITUS INSULIN-DEPENDENT
     Dosage: 58 IU, QD, SUBCUTANEOUS
     Route: 058
     Dates: start: 20040827

REACTIONS (1)
  - VITREOUS FLOATERS [None]
